FAERS Safety Report 8229190-X (Version None)
Quarter: 2012Q1

REPORT INFORMATION
  Report Type: 
  Country: None (occurrence: None)
  Receive Date: 20120322
  Receipt Date: 20120315
  Transmission Date: 20120608
  Serious: Yes (Hospitalization)
  Sender: FDA-Public Use
  Company Number: BR-PFIZER INC-2012069294

PATIENT
  Age: 71 Year
  Sex: Male

DRUGS (3)
  1. XALATAN [Suspect]
     Indication: CATARACT
     Dosage: 3 UG (ONE DROP IN EACH EYE) AT AN UNSPECIFIED FREQUENCY
     Route: 047
     Dates: start: 20070101, end: 20111129
  2. AMLODIPINE [Concomitant]
     Indication: HYPERTENSION
     Dosage: ONE TABLET DAILY
     Dates: start: 20040315
  3. LOSARTAN POTASSIUM [Concomitant]
     Indication: HYPERTENSION
     Dosage: ONE TABLET DAILY
     Dates: start: 20110915

REACTIONS (1)
  - CATARACT [None]
